FAERS Safety Report 10377103 (Version 2)
Quarter: 2014Q3

REPORT INFORMATION
  Report Type: Spontaneous
  Country: US (occurrence: US)
  Receive Date: 20140812
  Receipt Date: 20140902
  Transmission Date: 20150326
  Serious: Yes (Other)
  Sender: FDA-Public Use
  Company Number: US-PFIZER INC-2014219038

PATIENT
  Age: 80 Year
  Sex: Female
  Weight: 65.31 kg

DRUGS (6)
  1. XALATAN [Suspect]
     Active Substance: LATANOPROST
     Indication: GLAUCOMA
     Dosage: 1D HS OU
     Route: 047
     Dates: start: 2006
  2. BABY ASPIRIN [Concomitant]
     Active Substance: ASPIRIN
     Indication: HYPERTENSION
     Dosage: 81 MG, 1X/DAY AT NIGHT
  3. POTASSIUM [Concomitant]
     Active Substance: POTASSIUM
     Indication: HYPERTENSION
     Dosage: 10 MEQ, UNK
  4. XALATAN [Suspect]
     Active Substance: LATANOPROST
     Dosage: 1D HS OU
     Route: 047
     Dates: start: 2011
  5. HYDROCHLOROTHIAZIDE. [Concomitant]
     Active Substance: HYDROCHLOROTHIAZIDE
     Indication: HYPERTENSION
     Dosage: 25 MG, UNK
  6. LOVASTATIN. [Concomitant]
     Active Substance: LOVASTATIN
     Indication: BLOOD CHOLESTEROL INCREASED
     Dosage: 40 MG, UNK

REACTIONS (5)
  - Eye disorder [Unknown]
  - Weight decreased [Unknown]
  - Blood cholesterol abnormal [Recovered/Resolved]
  - Optic nerve disorder [Unknown]
  - Visual field defect [Unknown]

NARRATIVE: CASE EVENT DATE: 201307
